FAERS Safety Report 6507845-2 (Version None)
Quarter: 2009Q4

REPORT INFORMATION
  Report Type: 
  Country: None (occurrence: None)
  Receive Date: 20091221
  Receipt Date: 20091216
  Transmission Date: 20100525
  Serious: Yes (Other)
  Sender: FDA-Public Use
  Company Number: A0817764A

PATIENT
  Age: 65 Year
  Sex: Female

DRUGS (2)
  1. TYKERB [Suspect]
     Indication: DRUG USE FOR UNKNOWN INDICATION
     Dosage: 1250MG VARIABLE DOSE
     Route: 048
     Dates: start: 20091105
  2. AROMASIN [Suspect]
     Indication: DRUG USE FOR UNKNOWN INDICATION
     Route: 065
     Dates: start: 20091105

REACTIONS (8)
  - DERMATITIS ACNEIFORM [None]
  - DIARRHOEA [None]
  - HYPOAESTHESIA [None]
  - JOINT STIFFNESS [None]
  - PALMAR-PLANTAR ERYTHRODYSAESTHESIA SYNDROME [None]
  - PARAESTHESIA [None]
  - PRURITUS [None]
  - SKIN EXFOLIATION [None]
